FAERS Safety Report 4570999-1 (Version None)
Quarter: 2005Q1

REPORT INFORMATION
  Report Type: 
  Country: None (occurrence: None)
  Receive Date: 20050204
  Receipt Date: 20050203
  Transmission Date: 20050727
  Serious: Yes (Hospitalization)
  Sender: FDA-Public Use
  Company Number: CA-MERCK-0502CAN00024

PATIENT
  Age: 52 Year
  Sex: Female

DRUGS (2)
  1. VIOXX [Suspect]
     Indication: OSTEOARTHRITIS
     Route: 048
     Dates: start: 20040301, end: 20040901
  2. LEVOTHYROXINE SODIUM [Concomitant]
     Route: 065
     Dates: start: 20010101

REACTIONS (2)
  - CARDIAC DISORDER [None]
  - DIZZINESS [None]
